FAERS Safety Report 20838368 (Version 1)
Quarter: 2022Q2

REPORT INFORMATION
  Report Type: Spontaneous
  Country: US (occurrence: None)
  Receive Date: 20220516
  Receipt Date: 20220516
  Transmission Date: 20220721
  Serious: No
  Sender: FDA-Public Use
  Company Number: None

PATIENT
  Age: 32 Year
  Sex: Male
  Weight: 117 kg

DRUGS (2)
  1. KETAMINE HYDROCHLORIDE [Suspect]
     Active Substance: KETAMINE HYDROCHLORIDE
     Indication: Major depression
     Dosage: FREQUENCY : ONCE;?
     Route: 041
     Dates: start: 20220418, end: 20220418
  2. KETAMINE HYDROCHLORIDE [Suspect]
     Active Substance: KETAMINE HYDROCHLORIDE
     Indication: Post-traumatic stress disorder

REACTIONS (3)
  - Wrong patient received product [None]
  - Product dispensing error [None]
  - Drug monitoring procedure not performed [None]

NARRATIVE: CASE EVENT DATE: 20220418
